FAERS Safety Report 8835576 (Version 3)
Quarter: 2014Q1

REPORT INFORMATION
  Report Type: Spontaneous
  Country: US (occurrence: US)
  Receive Date: 20121011
  Receipt Date: 20140212
  Transmission Date: 20141002
  Serious: Yes (Other)
  Sender: FDA-Public Use
  Company Number: PHEH2012US019967

PATIENT
  Sex: Female

DRUGS (7)
  1. AREDIA [Suspect]
     Indication: BREAST CANCER RECURRENT
     Dosage: 90 MG, QMO
     Route: 042
     Dates: end: 20080917
  2. VICODIN [Concomitant]
  3. IBUPROFEN [Concomitant]
  4. AMBIEN [Concomitant]
  5. ATIVAN [Concomitant]
  6. PRILOSEC [Concomitant]
  7. CELEXA [Concomitant]

REACTIONS (8)
  - Uterine enlargement [Unknown]
  - Swelling [Unknown]
  - Postmenopausal haemorrhage [Unknown]
  - Uterine leiomyoma [Unknown]
  - Sinus congestion [Unknown]
  - Bone pain [Unknown]
  - Cervicitis [Unknown]
  - Osteoarthritis [Unknown]
